FAERS Safety Report 10235470 (Version 2)
Quarter: 2015Q1

REPORT INFORMATION
  Report Type: Spontaneous
  Country: CA (occurrence: CA)
  Receive Date: 20140613
  Receipt Date: 20150304
  Transmission Date: 20150720
  Serious: Yes (Hospitalization, Other)
  Sender: FDA-Public Use
  Company Number: CA-JNJFOC-20140602041

PATIENT
  Age: 21 Year
  Sex: Female
  Weight: 62.6 kg

DRUGS (11)
  1. APO HYDROXYZINE [Concomitant]
     Indication: HYPERSENSITIVITY
     Route: 065
     Dates: start: 20130603
  2. BENADRYL [Suspect]
     Active Substance: DIPHENHYDRAMINE HYDROCHLORIDE
     Indication: URTICARIA
     Route: 048
     Dates: start: 20130602, end: 20130602
  3. APO HYDROXYZINE [Concomitant]
     Indication: URTICARIA
     Route: 065
     Dates: start: 20130603
  4. AVAMIGRAN [Concomitant]
     Active Substance: CAFFEINE
     Indication: HEADACHE
     Dosage: AS REQUIRED
     Route: 048
  5. IMURAN [Concomitant]
     Active Substance: AZATHIOPRINE
     Indication: CROHN^S DISEASE
     Route: 048
     Dates: start: 2012
  6. HUMIRA [Suspect]
     Active Substance: ADALIMUMAB
     Indication: CROHN^S DISEASE
     Route: 058
     Dates: start: 20130522, end: 20130522
  7. UNKNOWN MEDICATION [Suspect]
     Active Substance: UNSPECIFIED INGREDIENT
     Indication: URTICARIA
     Route: 048
     Dates: start: 20130601, end: 20130602
  8. BENADRYL [Suspect]
     Active Substance: DIPHENHYDRAMINE HYDROCHLORIDE
     Indication: HYPERSENSITIVITY
     Route: 048
     Dates: start: 20130602, end: 20130602
  9. UNKNOWN MEDICATION [Suspect]
     Active Substance: UNSPECIFIED INGREDIENT
     Indication: HYPERSENSITIVITY
     Route: 048
     Dates: start: 20130601, end: 20130602
  10. AVAMIGRAN [Concomitant]
     Active Substance: CAFFEINE
     Indication: MIGRAINE
     Dosage: AS REQUIRED
     Route: 048
  11. MARVELON [Concomitant]
     Active Substance: DESOGESTREL\ETHINYL ESTRADIOL
     Indication: CONTRACEPTION
     Route: 048

REACTIONS (11)
  - Dizziness [Recovered/Resolved]
  - Injection site urticaria [Not Recovered/Not Resolved]
  - Headache [Recovered/Resolved]
  - Somnolence [Not Recovered/Not Resolved]
  - Off label use [Unknown]
  - Injection site pain [Recovered/Resolved]
  - Injection site reaction [Not Recovered/Not Resolved]
  - Nausea [Recovered/Resolved]
  - Hypersensitivity [Not Recovered/Not Resolved]
  - Injection site bruising [Not Recovered/Not Resolved]
  - Paraesthesia oral [Recovered/Resolved]

NARRATIVE: CASE EVENT DATE: 201305
